FAERS Safety Report 7750419-6 (Version None)
Quarter: 2011Q3

REPORT INFORMATION
  Report Type: 
  Country: None (occurrence: None)
  Receive Date: 20110914
  Receipt Date: 20110905
  Transmission Date: 20111222
  Serious: No
  Sender: FDA-Public Use
  Company Number: JP-BAYER-2011-065047

PATIENT
  Age: 70 Year
  Sex: Female
  Weight: 53 kg

DRUGS (8)
  1. VESICARE [Concomitant]
     Indication: HYPERTONIC BLADDER
     Dosage: DAILY DOSE 5 MG
     Route: 048
     Dates: start: 20110501, end: 20110718
  2. MUCOSTA [Concomitant]
     Indication: GASTRITIS PROPHYLAXIS
     Dosage: DAILY DOSE 300 MG
     Route: 048
     Dates: start: 20110501
  3. HANGEKOUBOKUTOU [Concomitant]
     Dosage: DAILY DOSE 7.5 G
     Route: 048
     Dates: start: 20110501, end: 20110715
  4. NEXAVAR [Suspect]
     Indication: RENAL CELL CARCINOMA
     Dosage: 400 MG, BID
     Route: 048
     Dates: start: 20110610, end: 20110715
  5. NEXAVAR [Suspect]
     Dosage: 200 MG, BID
     Route: 048
     Dates: start: 20110726
  6. BIFIDOBACTERIUM BIFIDUM/LACTOBACILLUS ACIDOPHILUS [Concomitant]
     Indication: CONSTIPATION
     Dosage: DAILY DOSE 3 G
     Route: 048
     Dates: start: 20110501
  7. CELECOXIB [Suspect]
     Indication: PAIN MANAGEMENT
     Dosage: 200 MG, QD
     Route: 048
     Dates: start: 20110711, end: 20110715
  8. ZOLPIDEM [Concomitant]
     Indication: INSOMNIA
     Dosage: DAILY DOSE 10 MG
     Route: 048
     Dates: start: 20110501, end: 20110715

REACTIONS (4)
  - WHITE BLOOD CELL COUNT DECREASED [None]
  - HEPATIC FUNCTION ABNORMAL [None]
  - PLATELET COUNT DECREASED [None]
  - RED BLOOD CELL COUNT DECREASED [None]
